FAERS Safety Report 8398296-7 (Version None)
Quarter: 2012Q2

REPORT INFORMATION
  Report Type: 
  Country: None (occurrence: None)
  Receive Date: 20120531
  Receipt Date: 20120529
  Transmission Date: 20120825
  Serious: Yes (Other)
  Sender: FDA-Public Use
  Company Number: US-MYLANLABS-2012S1007664

PATIENT
  Age: 71 Year
  Sex: Female
  Weight: 54.43 kg

DRUGS (9)
  1. IBUPROFEN [Concomitant]
     Dosage: ^REPORTED AS USING SOMETIMES^
  2. OMEPRAZOLE [Suspect]
     Indication: ABDOMINAL DISCOMFORT
     Route: 048
     Dates: start: 20111001, end: 20120101
  3. OMEPRAZOLE [Suspect]
     Route: 048
     Dates: start: 20120301, end: 20120401
  4. OMEPRAZOLE [Suspect]
     Indication: GASTROOESOPHAGEAL REFLUX DISEASE
     Route: 048
     Dates: start: 20111001, end: 20120101
  5. TRAMADOL HCL [Concomitant]
  6. MOBIC [Concomitant]
  7. LASIX [Concomitant]
  8. OMEPRAZOLE [Suspect]
     Route: 048
     Dates: start: 20120301, end: 20120401
  9. POTASSIUM CHLORIDE [Concomitant]

REACTIONS (4)
  - RECTAL HAEMORRHAGE [None]
  - VOMITING [None]
  - ABDOMINAL PAIN [None]
  - PAIN [None]
